FAERS Safety Report 8326260-2 (Version None)
Quarter: 2012Q2

REPORT INFORMATION
  Report Type: 
  Country: None (occurrence: None)
  Receive Date: 20120501
  Receipt Date: 20120425
  Transmission Date: 20120825
  Serious: Yes (Hospitalization)
  Sender: FDA-Public Use
  Company Number: US-CELGENEUS-163-21880-12033689

PATIENT
  Sex: Female

DRUGS (1)
  1. REVLIMID [Suspect]
     Indication: LYMPHOMA
     Dosage: 25 MILLIGRAM
     Route: 048
     Dates: start: 20120309, end: 20120405

REACTIONS (7)
  - LYMPHOMA [None]
  - FATIGUE [None]
  - HYPOMAGNESAEMIA [None]
  - HYPOKALAEMIA [None]
  - HYPERCALCAEMIA [None]
  - PANCYTOPENIA [None]
  - HYPOPHOSPHATAEMIA [None]
